FAERS Safety Report 7629422-2 (Version None)
Quarter: 2011Q3

REPORT INFORMATION
  Report Type: 
  Country: None (occurrence: None)
  Receive Date: 20110722
  Receipt Date: 20110713
  Transmission Date: 20111222
  Serious: Yes (Hospitalization)
  Sender: FDA-Public Use
  Company Number: NL-AMGEN-NLDCT2011035712

PATIENT
  Age: 81 Year
  Sex: Female

DRUGS (1)
  1. CINACALCET HYDROCHLORIDE [Suspect]
     Indication: HYPERPARATHYROIDISM PRIMARY
     Dosage: UNK
     Route: 048
     Dates: start: 20091118, end: 20091209

REACTIONS (2)
  - MUSCLE SPASMS [None]
  - HYPOCALCAEMIA [None]
